FAERS Safety Report 19984708 (Version 1)
Quarter: 2021Q4

REPORT INFORMATION
  Report Type: Spontaneous
  Country: IT (occurrence: IT)
  Receive Date: 20211021
  Receipt Date: 20211021
  Transmission Date: 20220303
  Serious: Yes (Hospitalization, Other)
  Sender: FDA-Public Use
  Company Number: IT-TEVA-2021-IT-1966578

PATIENT
  Age: 52 Year
  Sex: Female

DRUGS (1)
  1. ZOLPIDEM TARTRATE [Suspect]
     Active Substance: ZOLPIDEM TARTRATE
     Indication: Insomnia
     Dosage: 450 MILLIGRAM DAILY; (ONE BOTTLE AND HALF) BEDTIME
     Route: 048

REACTIONS (10)
  - Euphoric mood [Unknown]
  - Psychomotor hyperactivity [Unknown]
  - Vertigo [Unknown]
  - Anger [Unknown]
  - Irritability [Unknown]
  - Tremor [Unknown]
  - Withdrawal syndrome [Unknown]
  - Narcissistic personality disorder [Unknown]
  - Drug dependence [Recovered/Resolved]
  - Drug abuse [Unknown]
